FAERS Safety Report 4342347-3 (Version None)
Quarter: 2004Q2

REPORT INFORMATION
  Report Type: 
  Country: None (occurrence: None)
  Receive Date: 20040416
  Receipt Date: 20040401
  Transmission Date: 20050107
  Serious: Yes (Death)
  Sender: FDA-Public Use
  Company Number: USA-2003-0010730

PATIENT
  Age: 64 Year
  Sex: Male
  Weight: 75.5 kg

DRUGS (1)
  1. MS CONTIN [Suspect]
     Indication: PAIN
     Dosage: 90 MG, BID, ORAL
     Route: 048
     Dates: start: 19950101

REACTIONS (1)
  - DEATH [None]
